FAERS Safety Report 5427752-6 (Version None)
Quarter: 2007Q3

REPORT INFORMATION
  Report Type: 
  Country: None (occurrence: None)
  Receive Date: 20070828
  Receipt Date: 20070818
  Transmission Date: 20080115
  Serious: Yes (Hospitalization)
  Sender: FDA-Public Use
  Company Number: US-ELI_LILLY_AND_COMPANY-US200708003936

PATIENT
  Age: 74 Year
  Sex: Male

DRUGS (1)
  1. BYETTA [Suspect]
     Indication: TYPE 2 DIABETES MELLITUS
     Dosage: 5 UG, 2/D
     Route: 058
     Dates: start: 20060501, end: 20060501

REACTIONS (4)
  - INJECTION SITE BRUISING [None]
  - INJECTION SITE PAIN [None]
  - SKIN LESION [None]
  - SKIN ULCER [None]
